FAERS Safety Report 6987507-8 (Version None)
Quarter: 2010Q3

REPORT INFORMATION
  Report Type: 
  Country: None (occurrence: None)
  Receive Date: 20100916
  Receipt Date: 20100914
  Transmission Date: 20110219
  Serious: No
  Sender: FDA-Public Use
  Company Number: US-PFIZER INC-2010116440

PATIENT
  Sex: Male
  Weight: 130.16 kg

DRUGS (1)
  1. VIAGRA [Suspect]
     Indication: ERECTILE DYSFUNCTION
     Dosage: 100 MG, ONCE IN EVERY 10 DAYS
     Route: 048
     Dates: end: 20100101

REACTIONS (1)
  - DRUG INEFFECTIVE [None]
